FAERS Safety Report 7203125-0 (Version None)
Quarter: 2010Q4

REPORT INFORMATION
  Report Type: 
  Country: None (occurrence: None)
  Receive Date: 20101229
  Receipt Date: 20101222
  Transmission Date: 20110411
  Serious: Yes (Hospitalization)
  Sender: FDA-Public Use
  Company Number: JP-ABBOTT-10P-087-0693189-00

PATIENT
  Age: 73 Year
  Sex: Male

DRUGS (12)
  1. KALETRA [Suspect]
     Indication: HIV INFECTION
     Dosage: 4 TABLETS DAILY
     Route: 048
     Dates: start: 20090401, end: 20090413
  2. RITONAVIR [Suspect]
     Indication: HIV INFECTION
     Dosage: 300 MG DAILY
     Route: 048
     Dates: start: 20090422
  3. LAMIVUDINE [Suspect]
     Indication: HIV INFECTION
     Dosage: 300 MG DAILY
     Route: 048
     Dates: start: 20090408, end: 20090413
  4. LAMIVUDINE [Suspect]
     Route: 048
     Dates: start: 20090427
  5. ABACAVIR SULFATE [Suspect]
     Indication: HIV INFECTION
     Dosage: 600 MG DAILY
     Route: 048
     Dates: start: 20090408, end: 20090413
  6. ABACAVIR SULFATE [Suspect]
     Route: 048
     Dates: start: 20090427
  7. DARUNAVIR [Suspect]
     Indication: HIV INFECTION
     Dosage: 1200 MG DAILY
     Route: 048
     Dates: start: 20090422
  8. AZITHROMYCIN HYDRATE [Suspect]
     Indication: OPPORTUNISTIC INFECTION PROPHYLAXIS
     Route: 048
     Dates: start: 20090422, end: 20090528
  9. NAPHTHOQUINONE [Concomitant]
     Indication: PNEUMOCYSTIS JIROVECI PNEUMONIA
     Route: 048
     Dates: start: 20090221, end: 20090603
  10. NAPHTHOQUINONE [Concomitant]
     Indication: PROPHYLAXIS
  11. NAPHTHOQUINONE [Concomitant]
     Indication: CEREBRAL TOXOPLASMOSIS
  12. MINOCYCLINE HYDROCHLORIDE [Concomitant]
     Indication: NOCARDIOSIS
     Route: 048
     Dates: start: 20090326, end: 20090902

REACTIONS (4)
  - DECREASED APPETITE [None]
  - GASTRIC CANCER [None]
  - LIVER DISORDER [None]
  - NAUSEA [None]
